FAERS Safety Report 24986815 (Version 1)
Quarter: 2025Q1

REPORT INFORMATION
  Report Type: Spontaneous
  Country: US (occurrence: US)
  Receive Date: 20250219
  Receipt Date: 20250219
  Transmission Date: 20250409
  Serious: No
  Sender: BRISTOL-MYERS SQUIBB COMPANY
  Company Number: US-BRISTOL-MYERS SQUIBB COMPANY-2025-020382

PATIENT
  Sex: Female

DRUGS (1)
  1. ORENCIA [Suspect]
     Active Substance: ABATACEPT
     Indication: Rheumatoid arthritis
     Dates: start: 2024

REACTIONS (6)
  - Hypoaesthesia [Unknown]
  - Musculoskeletal stiffness [Unknown]
  - Insurance issue [Unknown]
  - Pain [Unknown]
  - Inability to afford medication [Unknown]
  - Therapy interrupted [Unknown]
